FAERS Safety Report 21686874 (Version 5)
Quarter: 2023Q2

REPORT INFORMATION
  Report Type: Report from Study
  Country: US (occurrence: US)
  Receive Date: 20221206
  Receipt Date: 20230421
  Transmission Date: 20230721
  Serious: Yes (Hospitalization)
  Sender: FDA-Public Use
  Company Number: US-002147023-NVSC2022US277076

PATIENT
  Age: 51 Year
  Sex: Female

DRUGS (4)
  1. KESIMPTA [Suspect]
     Active Substance: OFATUMUMAB
     Indication: Multiple sclerosis
     Dosage: 20 MG, QMO (INJECT 1 PEN AS DIRECTED)
     Route: 058
     Dates: start: 20210825
  2. KESIMPTA [Suspect]
     Active Substance: OFATUMUMAB
     Indication: Depression
  3. KESIMPTA [Suspect]
     Active Substance: OFATUMUMAB
     Indication: Psychotic disorder
  4. VIIBRYD [Concomitant]
     Active Substance: VILAZODONE HYDROCHLORIDE
     Indication: Product used for unknown indication
     Dosage: UNK
     Route: 065

REACTIONS (4)
  - Patella fracture [Unknown]
  - Fall [Unknown]
  - Device defective [Recovered/Resolved]
  - Incorrect dose administered by device [Unknown]

NARRATIVE: CASE EVENT DATE: 20221125
